FAERS Safety Report 6243371-6 (Version None)
Quarter: 2009Q2

REPORT INFORMATION
  Report Type: 
  Country: None (occurrence: None)
  Receive Date: 20090617
  Receipt Date: 20080402
  Transmission Date: 20091009
  Serious: No
  Sender: FDA-Public Use
  Company Number: 273704

PATIENT
  Age: 73 Year
  Sex: Female

DRUGS (2)
  1. LEVEMIR [Suspect]
     Indication: INSULIN-REQUIRING TYPE 2 DIABETES MELLITUS
     Dosage: 25 LU, BID, SUBCUTANEOUS
     Route: 058
  2. BYETTA (EXENATIDE, EXENATIDE) [Concomitant]

REACTIONS (3)
  - BLOOD GLUCOSE INCREASED [None]
  - INJECTION SITE HAEMATOMA [None]
  - INJECTION SITE HAEMORRHAGE [None]
